FAERS Safety Report 6647606-7 (Version None)
Quarter: 2010Q1

REPORT INFORMATION
  Report Type: 
  Country: None (occurrence: None)
  Receive Date: 20100323
  Receipt Date: 20100323
  Transmission Date: 20100710
  Serious: Yes (Hospitalization)
  Sender: FDA-Public Use
  Company Number: None

PATIENT
  Age: 77 Year
  Sex: Male
  Weight: 74.8 kg

DRUGS (1)
  1. HALOPERIDOL [Suspect]
     Indication: SURGERY
     Dosage: 5 MG ONCE IV
     Route: 042
     Dates: start: 20100317

REACTIONS (1)
  - ELECTROCARDIOGRAM QT PROLONGED [None]
